FAERS Safety Report 7366815-5 (Version None)
Quarter: 2011Q1

REPORT INFORMATION
  Report Type: 
  Country: None (occurrence: None)
  Receive Date: 20110322
  Receipt Date: 20110314
  Transmission Date: 20110831
  Serious: Yes (Hospitalization, Other)
  Sender: FDA-Public Use
  Company Number: GB-ROCHE-765474

PATIENT

DRUGS (7)
  1. CISPLATIN [Suspect]
     Route: 065
  2. 5-FLUOROURACIL [Suspect]
     Route: 065
  3. CARBOPLATIN [Suspect]
     Route: 065
  4. CAPECITABINE [Suspect]
     Route: 065
     Dates: start: 20070101
  5. EPIRUBICIN [Suspect]
     Route: 065
  6. 5-FLUOROURACIL [Suspect]
     Dosage: FORM: INFUSION
     Route: 065
  7. PACLITAXEL [Suspect]
     Route: 065

REACTIONS (8)
  - HAEMATOTOXICITY [None]
  - EMBOLISM VENOUS [None]
  - GASTROINTESTINAL TOXICITY [None]
  - OESOPHAGITIS [None]
  - TOXICITY TO VARIOUS AGENTS [None]
  - ELECTROLYTE IMBALANCE [None]
  - MUCOSAL INFLAMMATION [None]
  - CARDIOTOXICITY [None]
